FAERS Safety Report 6586698-0 (Version None)
Quarter: 2010Q1

REPORT INFORMATION
  Report Type: 
  Country: None (occurrence: None)
  Receive Date: 20100217
  Receipt Date: 20090702
  Transmission Date: 20100710
  Serious: No
  Sender: FDA-Public Use
  Company Number: US-ALLERGAN-0909381US

PATIENT

DRUGS (1)
  1. BOTOX COSMETIC [Suspect]
     Indication: DRUG USE FOR UNKNOWN INDICATION
     Dosage: 24 UNITS, SINGLE
     Route: 030
     Dates: start: 20090630, end: 20090630

REACTIONS (3)
  - BACK PAIN [None]
  - MYALGIA [None]
  - PYREXIA [None]
